FAERS Safety Report 8198973-7 (Version None)
Quarter: 2012Q1

REPORT INFORMATION
  Report Type: 
  Country: None (occurrence: None)
  Receive Date: 20120309
  Receipt Date: 20120228
  Transmission Date: 20120608
  Serious: Yes (Hospitalization)
  Sender: FDA-Public Use
  Company Number: US-JNJFOC-20120203902

PATIENT
  Sex: Male
  Weight: 79.38 kg

DRUGS (7)
  1. ANTIHISTAMINES [Concomitant]
     Indication: PREMEDICATION
  2. INFLIXIMAB, RECOMBINANT [Suspect]
     Indication: CROHN'S DISEASE
     Route: 042
     Dates: start: 20110209
  3. INFLIXIMAB, RECOMBINANT [Suspect]
     Route: 042
     Dates: start: 20110406
  4. ACETAMINOPHEN [Concomitant]
     Indication: PREMEDICATION
  5. INFLIXIMAB, RECOMBINANT [Suspect]
     Route: 042
     Dates: start: 20110601
  6. AZATHIOPRINE [Concomitant]
     Indication: CROHN'S DISEASE
  7. INFLIXIMAB, RECOMBINANT [Suspect]
     Dosage: 51 INFUSIONS
     Route: 042
     Dates: start: 20020729, end: 20101215

REACTIONS (1)
  - RHABDOMYOLYSIS [None]
